FAERS Safety Report 23931548 (Version 1)
Quarter: 2024Q2

REPORT INFORMATION
  Report Type: Spontaneous
  Country: PL (occurrence: PL)
  Receive Date: 20240603
  Receipt Date: 20240603
  Transmission Date: 20240716
  Serious: Yes (Other)
  Sender: FDA-Public Use
  Company Number: PL-TEVA-VS-3197816

PATIENT
  Age: 42 Year
  Sex: Female

DRUGS (20)
  1. TOPIRAMATE [Suspect]
     Active Substance: TOPIRAMATE
     Indication: Migraine
     Route: 065
  2. UNSPECIFIED INGREDIENT [Suspect]
     Active Substance: UNSPECIFIED INGREDIENT
     Indication: Headache
     Route: 065
  3. OPIPRAMOL HYDROCHLORIDE [Concomitant]
     Active Substance: OPIPRAMOL HYDROCHLORIDE
     Indication: Headache
     Dosage: 3 X 25MG , LATER THE DOSE WAS INCREASED TO 3 X 1 TAB
  4. PROPRANOLOL [Concomitant]
     Active Substance: PROPRANOLOL HYDROCHLORIDE
     Indication: Blood pressure measurement
     Dosage: 2 X 10MG
  5. Amitriptylinum [Concomitant]
     Indication: Headache
  6. VALPROATE SODIUM [Suspect]
     Active Substance: VALPROATE SODIUM
     Indication: Migraine
     Dosage: 2 X 500MG
     Route: 065
  7. AMITRIPTYLINE [Suspect]
     Active Substance: AMITRIPTYLINE
     Indication: Migraine
     Route: 065
  8. NAPROXEN [Concomitant]
     Active Substance: NAPROXEN
     Indication: Headache
  9. DIVASCAN [Concomitant]
     Indication: Headache
     Dosage: TIME INTERVAL: 0.33333333 DAYS: 3 X 1 TAB
  10. DIVASCAN [Concomitant]
     Indication: Headache
     Dosage: TIME INTERVAL: 0.33333333 DAYS: 3 X 2 TAB
  11. BOTULINUM TOXIN NOS [Concomitant]
     Active Substance: BOTULINUM TOXIN NOS
     Indication: Headache
  12. SUMATRIPTAN [Concomitant]
     Active Substance: SUMATRIPTAN
     Indication: Headache
  13. Solpadeine [Concomitant]
     Indication: Headache
     Dosage: 2 TABLETS
  14. UNSPECIFIED INGREDIENT [Suspect]
     Active Substance: UNSPECIFIED INGREDIENT
     Indication: Headache
     Route: 065
  15. Ketonal [Concomitant]
     Indication: Headache
  16. ZOLMITRIPTAN [Concomitant]
     Active Substance: ZOLMITRIPTAN
     Indication: Headache
  17. SUMAMIGREN [Concomitant]
     Indication: Headache
  18. MAXALT [Concomitant]
     Active Substance: RIZATRIPTAN BENZOATE
     Indication: Headache
  19. RELPAX [Concomitant]
     Active Substance: ELETRIPTAN HYDROBROMIDE
     Indication: Headache
  20. FLUNARIZINE [Concomitant]
     Active Substance: FLUNARIZINE
     Indication: Headache

REACTIONS (10)
  - Drug dependence [Unknown]
  - Alopecia [Unknown]
  - Drug intolerance [Unknown]
  - Drug ineffective [Unknown]
  - Off label use [Unknown]
  - Nausea [Unknown]
  - Photophobia [Unknown]
  - Hypersensitivity [Unknown]
  - Dry mouth [Unknown]
  - Constipation [Unknown]

NARRATIVE: CASE EVENT DATE: 20120101
